FAERS Safety Report 13927226 (Version 1)
Quarter: 2017Q3

REPORT INFORMATION
  Report Type: Spontaneous
  Country: US (occurrence: US)
  Receive Date: 20170901
  Receipt Date: 20170901
  Transmission Date: 20171127
  Serious: No
  Sender: FDA-Public Use
  Company Number: US-GLAXOSMITHKLINE-US2017131968

PATIENT
  Age: 96 Year
  Sex: Female

DRUGS (1)
  1. VOLTAREN [Suspect]
     Active Substance: DICLOFENAC SODIUM
     Indication: ARTHRITIS
     Dosage: SPARINGLY
     Dates: start: 201508

REACTIONS (3)
  - Off label use [Unknown]
  - Expired product administered [Unknown]
  - Drug effective for unapproved indication [Unknown]
